FAERS Safety Report 10059610 (Version 2)
Quarter: 2014Q2

REPORT INFORMATION
  Report Type: Report from Study
  Country: BR (occurrence: BR)
  Receive Date: 20140404
  Receipt Date: 20140624
  Transmission Date: 20141212
  Serious: Yes (Other)
  Sender: FDA-Public Use
  Company Number: PHHY2014BR039473

PATIENT
  Age: 75 Year
  Sex: Female
  Weight: 65 kg

DRUGS (5)
  1. SANDOSTATIN LAR [Suspect]
     Indication: HYPOTHALAMO-PITUITARY DISORDER
     Dosage: 20 MG, EVERY 28 DAYS
     Route: 030
  2. CITALOPRAM [Concomitant]
     Indication: ACROMEGALY
     Dosage: 2 DF, DAILY
     Route: 048
  3. ATENSINE [Concomitant]
     Indication: HYPERTENSION
     Dosage: 1 DF, DAILY
     Route: 048
  4. PURAN T4 [Concomitant]
     Indication: HORMONE THERAPY
     Dosage: 1 DF, DAILY
     Route: 048
  5. ALPRAZOLAM [Concomitant]
     Indication: SEDATIVE THERAPY
     Dosage: 1 DF, UNK

REACTIONS (13)
  - Cataract [Not Recovered/Not Resolved]
  - Blindness [Not Recovered/Not Resolved]
  - Pain in extremity [Not Recovered/Not Resolved]
  - Diabetes mellitus [Not Recovered/Not Resolved]
  - Blood glucose increased [Not Recovered/Not Resolved]
  - Boredom [Not Recovered/Not Resolved]
  - Blood pressure decreased [Unknown]
  - Malaise [Not Recovered/Not Resolved]
  - Hyperhidrosis [Recovered/Resolved]
  - Somnolence [Recovered/Resolved]
  - Blood pressure increased [Not Recovered/Not Resolved]
  - Blood glucose decreased [Not Recovered/Not Resolved]
  - Fatigue [Not Recovered/Not Resolved]
